FAERS Safety Report 10012619 (Version 1)
Quarter: 2014Q1

REPORT INFORMATION
  Report Type: Report from Study
  Country: NL (occurrence: NL)
  Receive Date: 20140314
  Receipt Date: 20140314
  Transmission Date: 20141002
  Serious: Yes (Other)
  Sender: FDA-Public Use
  Company Number: NL-B.I. PHARMACEUTICALS,INC./RIDGEFIELD-2014-BI-10713GD

PATIENT
  Sex: Male

DRUGS (3)
  1. PRAMIPEXOLE [Suspect]
     Indication: PRODUCT USED FOR UNKNOWN INDICATION
     Dosage: 0.125 MG ASCENDING
     Route: 048
  2. PRAMIPEXOLE [Suspect]
     Dosage: 3 MG
     Route: 048
  3. DOMPERIDONE [Suspect]
     Indication: DRUG TOXICITY PROPHYLAXIS
     Dosage: 30 MG
     Route: 048

REACTIONS (4)
  - Blood pressure systolic increased [Unknown]
  - Heart rate increased [Unknown]
  - Tremor [Unknown]
  - Chest discomfort [Unknown]
